FAERS Safety Report 4411804-3 (Version None)
Quarter: 2004Q3

REPORT INFORMATION
  Report Type: 
  Country: None (occurrence: None)
  Receive Date: 20040727
  Receipt Date: 20040720
  Transmission Date: 20050211
  Serious: Yes (Hospitalization)
  Sender: FDA-Public Use
  Company Number: 200210327BYL

PATIENT
  Age: 74 Year
  Sex: Male
  Weight: 38 kg

DRUGS (2)
  1. CIPROFLOXACIN [Suspect]
     Indication: PNEUMONIA
     Dosage: 200 MG, QD, INTRAVENOUS DRIP
     Route: 041
     Dates: start: 20020806, end: 20020820
  2. FUNGIZONE [Concomitant]

REACTIONS (2)
  - DEPRESSION [None]
  - SUICIDAL IDEATION [None]
